FAERS Safety Report 5853596-7 (Version None)
Quarter: 2008Q3

REPORT INFORMATION
  Report Type: 
  Country: None (occurrence: None)
  Receive Date: 20080822
  Receipt Date: 20080812
  Transmission Date: 20090109
  Serious: Yes (Hospitalization)
  Sender: FDA-Public Use
  Company Number: GB-JNJFOC-20080802767

PATIENT
  Age: 89 Year
  Sex: Female
  Weight: 45 kg

DRUGS (11)
  1. REMICADE [Suspect]
     Indication: RHEUMATOID ARTHRITIS
     Route: 042
  2. ASPIRIN [Concomitant]
  3. DIGOXIN [Concomitant]
  4. FELODIPINE [Concomitant]
  5. FOLIC ACID [Concomitant]
  6. LACTULOSE [Concomitant]
  7. LANSOPRAZOLE [Concomitant]
  8. ACETAMINOPHEN [Concomitant]
  9. METHOTREXATE SODIUM [Concomitant]
  10. PREDNISONE TAB [Concomitant]
  11. RISEDRONATE SODIUM [Concomitant]

REACTIONS (1)
  - HYPERTHYROIDISM [None]
